FAERS Safety Report 12957628 (Version 2)
Quarter: 2017Q1

REPORT INFORMATION
  Report Type: Spontaneous
  Country: DE (occurrence: DE)
  Receive Date: 20161118
  Receipt Date: 20170104
  Transmission Date: 20170428
  Serious: Yes (Life-Threatening, Hospitalization)
  Sender: FDA-Public Use
  Company Number: DE-ELI_LILLY_AND_COMPANY-DE201611005642

PATIENT
  Age: 54 Year
  Sex: Male
  Weight: 133.4 kg

DRUGS (11)
  1. XIGDUO XR [Concomitant]
     Active Substance: DAPAGLIFLOZIN PROPANEDIOL\METFORMIN HYDROCHLORIDE
     Indication: DIABETES MELLITUS
     Dosage: 1 DF, BID
     Route: 065
  2. LERCANIDIPIN ACTAVIS [Concomitant]
     Active Substance: LERCANIDIPINE
     Indication: BLOOD PRESSURE MEASUREMENT
     Dosage: 0.5 DF, BID
     Route: 065
  3. PANTOPRAZOL [Concomitant]
     Active Substance: PANTOPRAZOLE SODIUM
     Indication: DYSPEPSIA
     Dosage: 1 DF, PRN
     Route: 065
  4. TRULICITY [Suspect]
     Active Substance: DULAGLUTIDE
     Indication: DIABETES MELLITUS
     Dosage: 1.5 MG, WEEKLY (1/W)
     Route: 058
  5. CELEBREX [Concomitant]
     Active Substance: CELECOXIB
     Indication: PAIN
     Dosage: 1 DF, PRN
     Route: 065
  6. RAMIPRIL. [Concomitant]
     Active Substance: RAMIPRIL
     Indication: BLOOD PRESSURE MEASUREMENT
     Dosage: 5 MG, EACH EVENING
     Route: 065
  7. NOVAMIN                            /00013301/ [Concomitant]
     Active Substance: PROCHLORPERAZINE MALEATE
     Indication: PAIN
     Dosage: UNK UNK, PRN
     Route: 065
  8. RAMIPRIL. [Concomitant]
     Active Substance: RAMIPRIL
     Dosage: 1 DF, EACH MORNING
     Route: 065
  9. SYMBICORT [Concomitant]
     Active Substance: BUDESONIDE\FORMOTEROL FUMARATE DIHYDRATE
     Indication: DYSPNOEA
     Dosage: 1 DF, BID
     Route: 065
  10. SIMVASTATIN. [Concomitant]
     Active Substance: SIMVASTATIN
     Indication: BLOOD CHOLESTEROL
     Dosage: 0.5 DF, QD
     Route: 065
  11. GLIMEPIRID [Concomitant]
     Active Substance: GLIMEPIRIDE
     Indication: DIABETES MELLITUS
     Dosage: 0.5 DF, QD
     Route: 065

REACTIONS (2)
  - Hepatitis toxic [Recovered/Resolved]
  - General physical health deterioration [Recovered/Resolved]
